FAERS Safety Report 13896440 (Version 1)
Quarter: 2017Q3

REPORT INFORMATION
  Report Type: Spontaneous
  Country: US (occurrence: None)
  Receive Date: 20170815
  Receipt Date: 20170815
  Transmission Date: 20171127
  Serious: Yes (Hospitalization)
  Sender: FDA-Public Use
  Company Number: None

PATIENT
  Age: 62 Year
  Sex: Female
  Weight: 107.5 kg

DRUGS (1)
  1. ZEPATIER [Suspect]
     Active Substance: ELBASVIR\GRAZOPREVIR
     Indication: HEPATITIS C
     Dosage: 50/100MG TAB ONCEE DAILY ORAL
     Route: 048
     Dates: start: 20170803, end: 20170811

REACTIONS (2)
  - Back pain [None]
  - Neck pain [None]

NARRATIVE: CASE EVENT DATE: 20170811
